FAERS Safety Report 4425551-5 (Version None)
Quarter: 2004Q3

REPORT INFORMATION
  Report Type: 
  Country: None (occurrence: None)
  Receive Date: 20040810
  Receipt Date: 20040728
  Transmission Date: 20050211
  Serious: Yes (Hospitalization)
  Sender: FDA-Public Use
  Company Number: 2004US000854

PATIENT
  Age: 17 Month
  Sex: Female
  Weight: 7.5 kg

DRUGS (3)
  1. PROTOPIC [Suspect]
     Indication: DERMATITIS ATOPIC
     Dosage: TOPICAL
     Route: 061
  2. CORTICOSTEROIDS, DERMATOLOGICAL PREPARATIONS [Concomitant]
  3. EMOLLIENTS AND PROTECTIVES [Concomitant]

REACTIONS (1)
  - KWASHIORKOR [None]
